FAERS Safety Report 7324777-0 (Version None)
Quarter: 2011Q1

REPORT INFORMATION
  Report Type: 
  Country: None (occurrence: None)
  Receive Date: 20110301
  Receipt Date: 20101101
  Transmission Date: 20110831
  Serious: No
  Sender: FDA-Public Use
  Company Number: US-BAYER-201023358BCC

PATIENT
  Sex: Male
  Weight: 127.27 kg

DRUGS (1)
  1. ALEVE [Suspect]
     Indication: ANALGESIC THERAPY
     Dosage: 1 DF, BID
     Route: 048
     Dates: start: 20100901

REACTIONS (1)
  - CHEST PAIN [None]
